FAERS Safety Report 25045176 (Version 4)
Quarter: 2025Q2

REPORT INFORMATION
  Report Type: Spontaneous
  Country: JP (occurrence: JP)
  Receive Date: 20250306
  Receipt Date: 20250428
  Transmission Date: 20250717
  Serious: Yes (Death, Life-Threatening, Other)
  Sender: ACCORD
  Company Number: JP-MLMSERVICE-20250217-PI417897-00101-1

PATIENT
  Sex: Male

DRUGS (15)
  1. CISPLATIN [Suspect]
     Active Substance: CISPLATIN
     Indication: Transitional cell carcinoma metastatic
     Dosage: CISPLATIN AT 70 MG/M2 ON DAY 2 OF THE 28-DAY CYCLE
  2. AVELUMAB [Concomitant]
     Active Substance: AVELUMAB
     Indication: Transitional cell carcinoma metastatic
  3. GEMCITABINE [Concomitant]
     Active Substance: GEMCITABINE
     Indication: Transitional cell carcinoma metastatic
     Dosage: GEMCITABINE WAS ADMINISTERED AT 1000 MG/M2 ON DAYS
  4. CISPLATIN [Suspect]
     Active Substance: CISPLATIN
     Indication: Bladder cancer
     Dosage: CISPLATIN AT 70 MG/M2 ON DAY 2 OF THE 28-DAY CYCLE
  5. CISPLATIN [Suspect]
     Active Substance: CISPLATIN
     Indication: Metastatic carcinoma of the bladder
     Dosage: CISPLATIN AT 70 MG/M2 ON DAY 2 OF THE 28-DAY CYCLE
  6. CISPLATIN [Suspect]
     Active Substance: CISPLATIN
     Indication: Metastases to lymph nodes
     Dosage: CISPLATIN AT 70 MG/M2 ON DAY 2 OF THE 28-DAY CYCLE
  7. CISPLATIN [Suspect]
     Active Substance: CISPLATIN
     Indication: Metastases to lung
     Dosage: CISPLATIN AT 70 MG/M2 ON DAY 2 OF THE 28-DAY CYCLE
  8. AVELUMAB [Concomitant]
     Active Substance: AVELUMAB
     Indication: Metastases to lymph nodes
  9. AVELUMAB [Concomitant]
     Active Substance: AVELUMAB
     Indication: Metastases to lung
  10. AVELUMAB [Concomitant]
     Active Substance: AVELUMAB
     Indication: Bladder cancer
  11. AVELUMAB [Concomitant]
     Active Substance: AVELUMAB
     Indication: Metastatic carcinoma of the bladder
  12. GEMCITABINE [Concomitant]
     Active Substance: GEMCITABINE
     Indication: Metastases to lymph nodes
     Dosage: GEMCITABINE WAS ADMINISTERED AT 1000 MG/M2 ON DAYS
  13. GEMCITABINE [Concomitant]
     Active Substance: GEMCITABINE
     Indication: Metastases to lung
     Dosage: GEMCITABINE WAS ADMINISTERED AT 1000 MG/M2 ON DAYS
  14. GEMCITABINE [Concomitant]
     Active Substance: GEMCITABINE
     Indication: Metastatic carcinoma of the bladder
     Dosage: GEMCITABINE WAS ADMINISTERED AT 1000 MG/M2 ON DAYS
  15. GEMCITABINE [Concomitant]
     Active Substance: GEMCITABINE
     Indication: Bladder cancer
     Dosage: GEMCITABINE WAS ADMINISTERED AT 1000 MG/M2 ON DAYS

REACTIONS (1)
  - Myelodysplastic syndrome with multilineage dysplasia [Fatal]
